FAERS Safety Report 18900839 (Version 2)
Quarter: 2021Q1

REPORT INFORMATION
  Report Type: Spontaneous
  Country: US (occurrence: US)
  Receive Date: 20210216
  Receipt Date: 20210331
  Transmission Date: 20210420
  Serious: Yes (Other)
  Sender: FDA-Public Use
  Company Number: US-BAYER-2021-068993

PATIENT
  Age: 26 Year
  Sex: Female

DRUGS (1)
  1. MIRENA [Suspect]
     Active Substance: LEVONORGESTREL
     Indication: CONTRACEPTION
     Dosage: 20 ?G PER DAY CONTINOUSLY
     Route: 015
     Dates: start: 20201216

REACTIONS (5)
  - Abdominal pain lower [None]
  - Pregnancy with contraceptive device [None]
  - Device expulsion [Not Recovered/Not Resolved]
  - Genital haemorrhage [None]
  - Medical device pain [None]

NARRATIVE: CASE EVENT DATE: 20210119
